FAERS Safety Report 5323688-X (Version None)
Quarter: 2007Q2

REPORT INFORMATION
  Report Type: 
  Country: None (occurrence: None)
  Receive Date: 20070514
  Receipt Date: 20070502
  Transmission Date: 20071010
  Serious: Yes (Life-Threatening)
  Sender: FDA-Public Use
  Company Number: IT-ASTRAZENECA-2007SE02412

PATIENT
  Age: 12500 Day
  Sex: Female

DRUGS (6)
  1. LIDOCAINE [Suspect]
     Indication: ANAESTHESIA
     Dates: start: 20070404, end: 20070404
  2. NAROPIN [Suspect]
     Indication: ANAESTHESIA
     Route: 008
     Dates: start: 20070404, end: 20070404
  3. FENTATIENIL [Suspect]
     Indication: ANAESTHESIA
     Route: 008
     Dates: start: 20070404, end: 20070404
  4. LUAN [Concomitant]
     Route: 061
  5. VOLUVEN [Concomitant]
     Route: 042
  6. IODOPOVIDONE [Concomitant]
     Route: 061
     Dates: start: 20070404, end: 20070404

REACTIONS (2)
  - ANAPHYLACTIC SHOCK [None]
  - DYSPNOEA [None]
